FAERS Safety Report 14251835 (Version 4)
Quarter: 2018Q1

REPORT INFORMATION
  Report Type: Report from Study
  Country: US (occurrence: US)
  Receive Date: 20171205
  Receipt Date: 20180312
  Transmission Date: 20180508
  Serious: Yes (Death, Hospitalization, Other)
  Sender: FDA-Public Use
  Company Number: US-JNJFOC-20171204241

PATIENT
  Age: 72 Year
  Sex: Female

DRUGS (20)
  1. IMBRUVICA [Suspect]
     Active Substance: IBRUTINIB
     Indication: DIFFUSE LARGE B-CELL LYMPHOMA
     Route: 048
     Dates: start: 20171110
  2. IMBRUVICA [Suspect]
     Active Substance: IBRUTINIB
     Indication: CHRONIC LYMPHOCYTIC LEUKAEMIA
     Route: 048
     Dates: start: 20171110
  3. IMBRUVICA [Suspect]
     Active Substance: IBRUTINIB
     Indication: DIFFUSE LARGE B-CELL LYMPHOMA
     Route: 048
     Dates: start: 201409
  4. MOTRIN [Concomitant]
     Active Substance: IBUPROFEN
     Dosage: 200 MG, EVERY 4 HOURS, AS NEEDED
     Route: 048
     Dates: start: 20171209
  5. CLARITIN [Concomitant]
     Active Substance: LORATADINE
     Route: 048
     Dates: start: 20170707
  6. PERCOCET [Concomitant]
     Active Substance: ACETAMINOPHEN\OXYCODONE HYDROCHLORIDE
     Dosage: 1 DF, 5-35 MG PER TABLET
     Route: 048
     Dates: start: 20171024
  7. PROZAC [Concomitant]
     Active Substance: FLUOXETINE HYDROCHLORIDE
     Route: 048
  8. TYLENOL [Concomitant]
     Active Substance: ACETAMINOPHEN
     Dosage: 650 MG, EVERY 6 HOURS, AS NEEDED
     Route: 048
     Dates: start: 20171109
  9. ROBAXIN [Concomitant]
     Active Substance: METHOCARBAMOL
     Route: 048
     Dates: start: 20171109
  10. AMBIEN [Concomitant]
     Active Substance: ZOLPIDEM TARTRATE
     Indication: SLEEP DISORDER
     Dosage: 1 DF, 5 MG, TOTAL, NIGHTLY AS NEEDED
     Route: 048
  11. PEPCID [Concomitant]
     Active Substance: FAMOTIDINE
     Route: 048
  12. SENOKOT [Concomitant]
     Active Substance: SENNOSIDES
     Indication: CONSTIPATION
     Route: 048
     Dates: start: 20161213
  13. IMBRUVICA [Suspect]
     Active Substance: IBRUTINIB
     Indication: B-CELL SMALL LYMPHOCYTIC LYMPHOMA
     Route: 048
     Dates: start: 201409
  14. IMBRUVICA [Suspect]
     Active Substance: IBRUTINIB
     Indication: CHRONIC LYMPHOCYTIC LEUKAEMIA
     Route: 048
     Dates: start: 201409
  15. ADVIL [Concomitant]
     Active Substance: IBUPROFEN
     Dosage: 200 MG, EVERY 4 HOURS, AS NEEDED
     Route: 048
     Dates: start: 20171209
  16. CENTRUM [Concomitant]
     Active Substance: VITAMINS
     Route: 048
  17. OXYCONTIN [Concomitant]
     Active Substance: OXYCODONE HYDROCHLORIDE
     Route: 048
     Dates: start: 20171206
  18. IMBRUVICA [Suspect]
     Active Substance: IBRUTINIB
     Indication: B-CELL SMALL LYMPHOCYTIC LYMPHOMA
     Route: 048
     Dates: start: 20171110
  19. PROVENTIL [Concomitant]
     Active Substance: ALBUTEROL
     Dosage: 0.5 ML, 2.5 MG, EVERY 4 HOURS, AS NEEDED
     Dates: start: 20171109
  20. LOPRESSOR [Concomitant]
     Active Substance: METOPROLOL TARTRATE
     Route: 048
     Dates: start: 20171109

REACTIONS (18)
  - Disease progression [Fatal]
  - Fatigue [Unknown]
  - Blood calcium decreased [Unknown]
  - Atrial fibrillation [Unknown]
  - Dry skin [Unknown]
  - Hypercalcaemia of malignancy [Recovering/Resolving]
  - Metabolic encephalopathy [Unknown]
  - Essential hypertension [Unknown]
  - Depression [Unknown]
  - Thrombocytopenia [Unknown]
  - Oedema [Unknown]
  - Breast cancer [Fatal]
  - Bursitis [Unknown]
  - Diarrhoea [Not Recovered/Not Resolved]
  - Thrombophlebitis superficial [Unknown]
  - Diffuse large B-cell lymphoma [Unknown]
  - Insomnia [Not Recovered/Not Resolved]
  - Skin warm [Unknown]

NARRATIVE: CASE EVENT DATE: 20150331
